FAERS Safety Report 21922268 (Version 2)
Quarter: 2023Q1

REPORT INFORMATION
  Report Type: Report from Study
  Country: ZA (occurrence: ZA)
  Receive Date: 20230128
  Receipt Date: 20230211
  Transmission Date: 20230417
  Serious: Yes (Other)
  Sender: FDA-Public Use
  Company Number: ZA-002147023-NVSC2023ZA015325

PATIENT
  Sex: Female
  Weight: 31 kg

DRUGS (7)
  1. COSENTYX [Suspect]
     Active Substance: SECUKINUMAB
     Indication: Juvenile spondyloarthritis
     Dosage: 75 MG, QW
     Route: 058
     Dates: start: 20221016
  2. COSENTYX [Suspect]
     Active Substance: SECUKINUMAB
     Dosage: 150 MG, QMO
     Route: 058
  3. LEFLUNOMIDE [Concomitant]
     Active Substance: LEFLUNOMIDE
     Indication: Product used for unknown indication
     Dosage: 10 MG, QD
     Route: 048
  4. INH [Concomitant]
     Active Substance: ISONIAZID
     Indication: Product used for unknown indication
     Dosage: 300 MG, QD
     Route: 048
  5. VITAMIN D3 [Concomitant]
     Active Substance: CHOLECALCIFEROL
     Indication: Product used for unknown indication
     Dosage: 50000 IU, QMO
     Route: 048
  6. CALCIUM CARBONATE [Concomitant]
     Active Substance: CALCIUM CARBONATE
     Indication: Product used for unknown indication
     Dosage: 2 DOSAGE FORM, QD
     Route: 048
  7. PRED FORTE [Concomitant]
     Active Substance: PREDNISOLONE ACETATE
     Indication: Product used for unknown indication
     Dosage: 1 DRP, QD (BE)
     Route: 065

REACTIONS (13)
  - Blindness [Unknown]
  - Iridocyclitis [Unknown]
  - Concomitant disease aggravated [Unknown]
  - Pain [Unknown]
  - Juvenile spondyloarthritis [Unknown]
  - Condition aggravated [Unknown]
  - Enthesopathy [Unknown]
  - Arthralgia [Unknown]
  - Psoriasis [Unknown]
  - Skin exfoliation [Unknown]
  - Rash erythematous [Unknown]
  - General physical health deterioration [Unknown]
  - Weight increased [Unknown]

NARRATIVE: CASE EVENT DATE: 20230117
